FAERS Safety Report 4514178-2 (Version None)
Quarter: 2004Q4

REPORT INFORMATION
  Report Type: 
  Country: None (occurrence: None)
  Receive Date: 20041129
  Receipt Date: 20041117
  Transmission Date: 20050328
  Serious: Yes (Hospitalization)
  Sender: FDA-Public Use
  Company Number: 04-11-1593

PATIENT
  Age: 44 Year
  Sex: Male

DRUGS (2)
  1. CLOZAPINE [Suspect]
     Indication: SCHIZOPHRENIA, PARANOID TYPE
     Dosage: 250-400 MG QD ORAL
     Route: 048
     Dates: start: 20000301
  2. DILANTIN [Suspect]
     Indication: CONVULSION

REACTIONS (4)
  - ATAXIA [None]
  - CARDIAC DISORDER [None]
  - CONVULSION [None]
  - DRUG TOXICITY [None]
